FAERS Safety Report 8290828 (Version 2)
Quarter: 2013Q2

REPORT INFORMATION
  Report Type: Spontaneous
  Country: US (occurrence: None)
  Receive Date: 20111122
  Receipt Date: 20120426
  Transmission Date: 20140414
  Serious: No
  Sender: FDA-Public Use
  Company Number: PHEH2011US00784

PATIENT
  Age: 50 Year
  Sex: Female

DRUGS (1)
  1. GILENYA [Suspect]
     Dates: start: 2007

REACTIONS (5)
  - DEHYDRATION [None]
  - FATIGUE [None]
  - MIGRAINE [None]
  - Stress [None]
  - Muscle spasms [None]
